FAERS Safety Report 21538813 (Version 1)
Quarter: 2022Q4

REPORT INFORMATION
  Report Type: Spontaneous
  Country: IL (occurrence: IL)
  Receive Date: 20221102
  Receipt Date: 20221102
  Transmission Date: 20230112
  Serious: Yes (Other)
  Sender: FDA-Public Use
  Company Number: IL-ALKEM LABORATORIES LIMITED-IL-ALKEM-2022-11705

PATIENT

DRUGS (2)
  1. SIROLIMUS [Suspect]
     Active Substance: SIROLIMUS
     Indication: Lymphatic disorder
     Dosage: 0.6 MILLIGRAM/SQ. METER, BID(SYSTEMIC TREATMENT REGIMEN INITIALLY CONSISTED OF ORAL 0.6 MG/M2 SIROLI
     Route: 048
  2. SIROLIMUS [Suspect]
     Active Substance: SIROLIMUS
     Dosage: UNK (SYSTEMIC TREATMENT REGIMEN INITIALLY CONSISTED OF ORAL 0.6 MG/M2 SIROLIMUS TWICE DAILY, WHICH W
     Route: 048

REACTIONS (1)
  - Hyperkalaemia [Unknown]
